FAERS Safety Report 11287239 (Version 2)
Quarter: 2015Q3

REPORT INFORMATION
  Report Type: Spontaneous
  Country: IT (occurrence: IT)
  Receive Date: 20150721
  Receipt Date: 20150731
  Transmission Date: 20151125
  Serious: Yes (Hospitalization)
  Sender: FDA-Public Use
  Company Number: IT-SUN PHARMACEUTICAL INDUSTRIES LTD-2015RR-100543

PATIENT

DRUGS (2)
  1. CITALOPRAM [Suspect]
     Active Substance: CITALOPRAM HYDROBROMIDE
     Indication: INTENTIONAL SELF-INJURY
     Dosage: 4 UNITS TOTAL
     Route: 048
     Dates: start: 20150522, end: 20150522
  2. DIAZEPAM. [Suspect]
     Active Substance: DIAZEPAM
     Indication: INTENTIONAL SELF-INJURY
     Dosage: 70 DROPS TOTAL
     Route: 048
     Dates: start: 20150522, end: 20150522

REACTIONS (4)
  - Headache [Recovered/Resolved]
  - Intentional self-injury [Recovered/Resolved]
  - Intentional overdose [Recovered/Resolved]
  - Nausea [Recovered/Resolved]

NARRATIVE: CASE EVENT DATE: 20150522
